FAERS Safety Report 18988860 (Version 1)
Quarter: 2021Q1

REPORT INFORMATION
  Report Type: Spontaneous
  Country: US (occurrence: US)
  Receive Date: 20210309
  Receipt Date: 20210309
  Transmission Date: 20210420
  Serious: Yes (Life-Threatening, Hospitalization, Other)
  Sender: FDA-Public Use
  Company Number: US-AMGEN-USASP2021035342

PATIENT

DRUGS (4)
  1. CYCLOPHOSPHAMIDE. [Concomitant]
     Active Substance: CYCLOPHOSPHAMIDE
     Indication: BREAST CANCER
     Dosage: 600 MILLIGRAM/SQ. METER, Q2WK (OVER 30 MINUTES)
     Route: 042
  2. DOXORUBICIN [Concomitant]
     Active Substance: DOXORUBICIN
     Indication: BREAST CANCER
     Dosage: 60 MILLIGRAM/SQ. METER, Q2WK (OVER 15 MINUTES)
     Route: 042
  3. FILGRASTIM [Suspect]
     Active Substance: FILGRASTIM
     Indication: PROPHYLAXIS
     Dosage: 5 MICROGRAM/KILOGRAM, Q2WK (7 TO 10 DAYS)
     Route: 058
  4. PEGFILGRASTIM [Suspect]
     Active Substance: PEGFILGRASTIM
     Indication: PROPHYLAXIS
     Dosage: 6 MILLIGRAM, Q2WK
     Route: 058

REACTIONS (21)
  - Bronchospasm [Recovering/Resolving]
  - Cough [Recovering/Resolving]
  - Febrile neutropenia [Unknown]
  - Nausea [Unknown]
  - Neutropenia [Unknown]
  - Myocarditis [Recovered/Resolved]
  - Stomatitis [Unknown]
  - Sinus tachycardia [Unknown]
  - Infection [Unknown]
  - Dermatitis [Unknown]
  - Neutrophil toxic granulation present [Unknown]
  - Pericarditis [Recovered/Resolved]
  - Breast abscess [Unknown]
  - Blister [Unknown]
  - Wound infection [Unknown]
  - Respiratory disorder [Unknown]
  - Diverticulitis [Unknown]
  - Mucosal inflammation [Unknown]
  - Vomiting [Unknown]
  - Fatigue [Unknown]
  - Radiation skin injury [Unknown]
